FAERS Safety Report 7007597-6 (Version None)
Quarter: 2010Q3

REPORT INFORMATION
  Report Type: 
  Country: None (occurrence: None)
  Receive Date: 20100920
  Receipt Date: 20100903
  Transmission Date: 20110219
  Serious: Yes (Hospitalization)
  Sender: FDA-Public Use
  Company Number: DSA_43953_2010

PATIENT
  Age: 37 Year
  Sex: Male

DRUGS (2)
  1. DILTIAZEM HCL [Suspect]
     Indication: SUICIDE ATTEMPT
     Dosage: (ORAL)
     Route: 048
  2. NICORANDIL [Concomitant]

REACTIONS (7)
  - ELECTROCARDIOGRAM P WAVE ABNORMAL [None]
  - NODAL RHYTHM [None]
  - RENAL FAILURE [None]
  - SHOCK [None]
  - SINUS ARREST [None]
  - SUICIDE ATTEMPT [None]
  - THERAPEUTIC AGENT TOXICITY [None]
